FAERS Safety Report 23890220 (Version 1)
Quarter: 2024Q2

REPORT INFORMATION
  Report Type: Spontaneous
  Country: CN (occurrence: CN)
  Receive Date: 20240523
  Receipt Date: 20240523
  Transmission Date: 20240716
  Serious: Yes (Hospitalization, Other)
  Sender: FDA-Public Use
  Company Number: None

PATIENT
  Age: 10 Year
  Sex: Male

DRUGS (4)
  1. MESNA [Suspect]
     Active Substance: MESNA
     Indication: Prophylaxis
     Dosage: UNK, START DATE: APR-2024
     Route: 065
  2. CYCLOPHOSPHAMIDE [Suspect]
     Active Substance: CYCLOPHOSPHAMIDE
     Indication: Neoplasm malignant
     Dosage: 0.93 G, ONE TIME IN ONE DAY, AS A PART OF CAT (CTX + ARA-C + 6-MP) CHEMOTHERAPY
     Route: 041
     Dates: start: 20240417, end: 20240417
  3. CYTARABINE [Suspect]
     Active Substance: CYTARABINE
     Indication: Neoplasm malignant
     Dosage: 46 MG, TWO TIMES IN ONE DAY, ARA-C, AS A PART OF CAT (CTX + ARA-C + 6-MP) CHEMOTHERAPY
     Route: 041
     Dates: start: 20240417, end: 20240524
  4. MERCAPTOPURINE [Suspect]
     Active Substance: MERCAPTOPURINE
     Indication: Neoplasm malignant
     Dosage: UNK, 6-MP, START DATE: APR-2024, AS A PART OF CAT (CTX + ARA-C + 6-MP) CHEMOTHERAPY
     Route: 065

REACTIONS (3)
  - Myelosuppression [Recovering/Resolving]
  - Neutrophil count decreased [Recovering/Resolving]
  - Platelet count decreased [Recovering/Resolving]

NARRATIVE: CASE EVENT DATE: 20240425
